FAERS Safety Report 7110508-6 (Version None)
Quarter: 2010Q4

REPORT INFORMATION
  Report Type: 
  Country: None (occurrence: None)
  Receive Date: 20101116
  Receipt Date: 20101116
  Transmission Date: 20110411
  Serious: No
  Sender: FDA-Public Use
  Company Number: None

PATIENT
  Age: 52 Year
  Sex: Female
  Weight: 57.1532 kg

DRUGS (3)
  1. XANAX [Suspect]
     Indication: ANXIETY
     Dates: start: 20030401, end: 20101101
  2. XANAX [Suspect]
     Indication: PANIC DISORDER
     Dates: start: 20030401, end: 20101101
  3. GRENSTONE 1MG 3 TIMES A DAYPFIZER [Suspect]
     Dates: start: 20030901, end: 20101001

REACTIONS (9)
  - DIARRHOEA [None]
  - DRUG INEFFECTIVE [None]
  - HEADACHE [None]
  - INSOMNIA [None]
  - MALAISE [None]
  - NAUSEA [None]
  - NERVOUSNESS [None]
  - PRODUCT SUBSTITUTION ISSUE [None]
  - TREMOR [None]
